FAERS Safety Report 10021183 (Version 2)
Quarter: 2014Q1

REPORT INFORMATION
  Report Type: Spontaneous
  Country: US (occurrence: US)
  Receive Date: 20140319
  Receipt Date: 20140320
  Transmission Date: 20141002
  Serious: No
  Sender: FDA-Public Use
  Company Number: US-009507513-1403USA006453

PATIENT
  Age: 33 Year
  Sex: Female
  Weight: 61.22 kg

DRUGS (2)
  1. NUVARING [Suspect]
     Indication: CONTRACEPTION
     Dosage: 1 RING INSERTED FOR 3 WEEKS
     Route: 067
     Dates: start: 201103, end: 201403
  2. NUVARING [Suspect]
     Dosage: 1 RING INSERTED FOR THREE WEEKS
     Route: 067
     Dates: start: 20140312

REACTIONS (3)
  - Poor quality drug administered [Unknown]
  - Product colour issue [Unknown]
  - Product shape issue [Unknown]
